FAERS Safety Report 7016046-3 (Version None)
Quarter: 2010Q3

REPORT INFORMATION
  Report Type: 
  Country: None (occurrence: None)
  Receive Date: 20100927
  Receipt Date: 20100923
  Transmission Date: 20110219
  Serious: Yes (Hospitalization)
  Sender: FDA-Public Use
  Company Number: GXKR2010DE10069

PATIENT
  Sex: Female

DRUGS (1)
  1. OMEP (NGX) [Suspect]
     Indication: GASTROINTESTINAL PAIN
     Dosage: 4X40 MG, UNK
     Route: 048

REACTIONS (3)
  - ABDOMINAL PAIN [None]
  - BENIGN COLONIC NEOPLASM [None]
  - OVERDOSE [None]
